APPROVED DRUG PRODUCT: LIMBITROL
Active Ingredient: AMITRIPTYLINE HYDROCHLORIDE; CHLORDIAZEPOXIDE
Strength: EQ 12.5MG BASE;5MG **Federal Register determination that product was not discontinued or withdrawn for safety or effectiveness reasons**
Dosage Form/Route: TABLET;ORAL
Application: N016949 | Product #001
Applicant: CHARTWELL RX SCIENCES LLC
Approved: Approved Prior to Jan 1, 1982 | RLD: Yes | RS: No | Type: DISCN